FAERS Safety Report 9288176 (Version 1)
Quarter: 2013Q2

REPORT INFORMATION
  Report Type: Spontaneous
  Country: US (occurrence: None)
  Receive Date: 20130513
  Receipt Date: 20130513
  Transmission Date: 20140414
  Serious: Yes (Death, Other)
  Sender: FDA-Public Use
  Company Number: None

PATIENT
  Age: 28 Year
  Sex: Female
  Weight: 58.97 kg

DRUGS (1)
  1. AMITRIPTYLINE HCL [Suspect]
     Dosage: ONLY 1 PILL TAKEN
     Route: 048

REACTIONS (1)
  - Muscle spasms [None]
